FAERS Safety Report 5113677-2 (Version None)
Quarter: 2006Q3

REPORT INFORMATION
  Report Type: 
  Country: None (occurrence: None)
  Receive Date: 20060921
  Receipt Date: 20060921
  Transmission Date: 20061208
  Serious: Yes (Hospitalization)
  Sender: FDA-Public Use
  Company Number: None

PATIENT
  Age: 57 Year
  Sex: Male
  Weight: 93.5 kg

DRUGS (10)
  1. TACROLIMUS [Suspect]
     Indication: RENAL DISORDER
     Dosage: 0.5 MG PO BID
     Route: 048
  2. AMIODARONE HCL [Suspect]
     Indication: ATRIAL FIBRILLATION
     Dosage: 200 MG PO DAILY
     Route: 048
  3. WARFARIN SODIUM [Concomitant]
  4. GABAPENTIN [Concomitant]
  5. LOSARTAN POSTASSIUM [Concomitant]
  6. PRAVASTATIN [Concomitant]
  7. ALLOPURINOL [Concomitant]
  8. TRAZODONE HCL [Concomitant]
  9. FOLIC ACID [Concomitant]
  10. PREDNISONE TAB [Concomitant]

REACTIONS (4)
  - ASTHENIA [None]
  - HYPOTENSION [None]
  - REVERSIBLE POSTERIOR LEUKOENCEPHALOPATHY SYNDROME [None]
  - TREMOR [None]
